FAERS Safety Report 7027040-0 (Version None)
Quarter: 2010Q4

REPORT INFORMATION
  Report Type: 
  Country: None (occurrence: None)
  Receive Date: 20101004
  Receipt Date: 20100924
  Transmission Date: 20110411
  Serious: Yes (Death)
  Sender: FDA-Public Use
  Company Number: US-PURDUE-USA-2010-0047707

PATIENT
  Age: 25 Year
  Sex: Male

DRUGS (2)
  1. OXYCONTIN [Suspect]
     Indication: BACK PAIN
  2. NORCO [Suspect]
     Indication: BREAKTHROUGH PAIN

REACTIONS (2)
  - DEATH [None]
  - PAIN [None]
